FAERS Safety Report 5647390-X (Version None)
Quarter: 2008Q1

REPORT INFORMATION
  Report Type: 
  Country: None (occurrence: None)
  Receive Date: 20080303
  Receipt Date: 20080220
  Transmission Date: 20080703
  Serious: Yes (Hospitalization)
  Sender: FDA-Public Use
  Company Number: CH-GENENTECH-254193

PATIENT
  Sex: Male

DRUGS (5)
  1. XOLAIR [Suspect]
     Indication: ASTHMA
     Dosage: 150 MG, SINGLE
     Route: 058
     Dates: start: 20071217, end: 20071217
  2. SYMBICORT [Concomitant]
     Indication: DRUG USE FOR UNKNOWN INDICATION
  3. CALCIUM [Concomitant]
     Indication: DRUG USE FOR UNKNOWN INDICATION
  4. ZALDIAR [Concomitant]
     Indication: DRUG USE FOR UNKNOWN INDICATION
  5. NEDOCROMIL SODIUM [Concomitant]
     Indication: DRUG USE FOR UNKNOWN INDICATION

REACTIONS (6)
  - ALLERGIC GRANULOMATOUS ANGIITIS [None]
  - DEPRESSED MOOD [None]
  - EOSINOPHILIA [None]
  - MYOCARDITIS [None]
  - NORMOCHROMIC NORMOCYTIC ANAEMIA [None]
  - PERICARDIAL EFFUSION [None]
